FAERS Safety Report 15533965 (Version 1)
Quarter: 2018Q4

REPORT INFORMATION
  Report Type: Spontaneous
  Country: FR (occurrence: FR)
  Receive Date: 20181019
  Receipt Date: 20181019
  Transmission Date: 20190205
  Serious: Yes (Hospitalization, Other)
  Sender: FDA-Public Use
  Company Number: FR-PFIZER INC-2018413933

PATIENT
  Age: 77 Year
  Sex: Male

DRUGS (2)
  1. VANCOMYCINE [Suspect]
     Active Substance: VANCOMYCIN
     Dosage: UNK
     Route: 042
     Dates: start: 20171016
  2. LINEZOLID. [Suspect]
     Active Substance: LINEZOLID
     Indication: MEDIASTINITIS
     Dosage: UNK
     Route: 042
     Dates: start: 20171016

REACTIONS (1)
  - Acute kidney injury [Recovered/Resolved]

NARRATIVE: CASE EVENT DATE: 201712
